FAERS Safety Report 4773271-X (Version None)
Quarter: 2005Q3

REPORT INFORMATION
  Report Type: 
  Country: None (occurrence: None)
  Receive Date: 20050916
  Receipt Date: 20050719
  Transmission Date: 20060218
  Serious: Yes (Death)
  Sender: FDA-Public Use
  Company Number: 200511275BWH

PATIENT

DRUGS (1)
  1. NIMOTOP [Suspect]
     Dosage: INTRAVENOUS
     Route: 042

REACTIONS (2)
  - CARDIO-RESPIRATORY ARREST [None]
  - INCORRECT ROUTE OF DRUG ADMINISTRATION [None]
